FAERS Safety Report 7410759-7 (Version None)
Quarter: 2011Q2

REPORT INFORMATION
  Report Type: 
  Country: None (occurrence: None)
  Receive Date: 20110413
  Receipt Date: 20110331
  Transmission Date: 20111010
  Serious: Yes (Hospitalization)
  Sender: FDA-Public Use
  Company Number: US-ELI_LILLY_AND_COMPANY-US201104000706

PATIENT
  Sex: Female

DRUGS (1)
  1. FORTEO [Suspect]
     Dosage: UNK, QD
     Route: 058
     Dates: start: 20110126

REACTIONS (3)
  - MALAISE [None]
  - CARDIAC DISORDER [None]
  - DYSPNOEA [None]
